FAERS Safety Report 12467777 (Version 1)
Quarter: 2016Q2

REPORT INFORMATION
  Report Type: Spontaneous
  Country: US (occurrence: None)
  Receive Date: 20160614
  Receipt Date: 20160614
  Transmission Date: 20160815
  Serious: Yes (Hospitalization)
  Sender: FDA-Public Use
  Company Number: None

PATIENT
  Age: 39 Year
  Sex: Male

DRUGS (1)
  1. GLATOPA [Suspect]
     Active Substance: GLATIRAMER ACETATE
     Indication: MULTIPLE SCLEROSIS
     Route: 058
     Dates: start: 20160331, end: 20160415

REACTIONS (4)
  - Visual impairment [None]
  - Vomiting [None]
  - Peripheral swelling [None]
  - Bowel movement irregularity [None]

NARRATIVE: CASE EVENT DATE: 20160415
